FAERS Safety Report 9753730 (Version 3)
Quarter: 2014Q1

REPORT INFORMATION
  Report Type: Report from Study
  Country: US (occurrence: US)
  Receive Date: 20131213
  Receipt Date: 20140127
  Transmission Date: 20141002
  Serious: Yes (Hospitalization, Other)
  Sender: FDA-Public Use
  Company Number: US-ABBVIE-13P-163-1174066-00

PATIENT
  Age: 39 Year
  Sex: Female
  Weight: 72.64 kg

DRUGS (7)
  1. HUMIRA [Suspect]
     Indication: CROHN^S DISEASE
     Route: 058
     Dates: start: 2008, end: 201310
  2. HUMIRA [Suspect]
  3. VITAMIN B12 [Concomitant]
     Indication: CROHN^S DISEASE
     Route: 050
  4. TRAZODONE [Concomitant]
     Indication: UNEVALUABLE EVENT
  5. MULTIVITAMIN [Concomitant]
     Indication: VITAMIN SUPPLEMENTATION
  6. ALOE VERA [Concomitant]
     Indication: GASTROINTESTINAL DISORDER
  7. NORCO [Concomitant]
     Indication: ABDOMINAL PAIN

REACTIONS (6)
  - Menorrhagia [Unknown]
  - Endometriosis [Unknown]
  - Nasopharyngitis [Recovering/Resolving]
  - Bronchitis [Recovering/Resolving]
  - Nasal ulcer [Recovered/Resolved]
  - Ear infection [Recovered/Resolved]
